FAERS Safety Report 18129046 (Version 1)
Quarter: 2020Q3

REPORT INFORMATION
  Report Type: Spontaneous
  Country: US (occurrence: US)
  Receive Date: 20200807
  Receipt Date: 20200807
  Transmission Date: 20201103
  Serious: No
  Sender: FDA-Public Use
  Company Number: None

PATIENT
  Sex: Female

DRUGS (8)
  1. METFORMIN [Concomitant]
     Active Substance: METFORMIN HYDROCHLORIDE
  2. TALTZ [Suspect]
     Active Substance: IXEKIZUMAB
     Indication: PSORIASIS
     Route: 058
     Dates: start: 201910
  3. PLOGLITAZONE [Concomitant]
  4. FLUCONAZOLE. [Concomitant]
     Active Substance: FLUCONAZOLE
  5. DULOXETINE. [Concomitant]
     Active Substance: DULOXETINE
  6. TRIAMCINOLON [Concomitant]
  7. COSENTYX [Concomitant]
     Active Substance: SECUKINUMAB
  8. UREA. [Concomitant]
     Active Substance: UREA

REACTIONS (1)
  - Therapy interrupted [None]
